FAERS Safety Report 5370055-9 (Version None)
Quarter: 2007Q2

REPORT INFORMATION
  Report Type: 
  Country: None (occurrence: None)
  Receive Date: 20070626
  Receipt Date: 20070612
  Transmission Date: 20071010
  Serious: Yes (Hospitalization)
  Sender: FDA-Public Use
  Company Number: US-SP-2007-02169

PATIENT
  Age: 79 Year
  Sex: Female

DRUGS (16)
  1. IMMUNOGLOBULIN HUMAN ANTIRABIES [Suspect]
     Indication: ACCIDENTAL EXPOSURE
     Route: 065
     Dates: start: 20061105
  2. IMMUNOGLOBULIN HUMAN ANTIRABIES [Suspect]
     Route: 065
     Dates: start: 20061105
  3. IMMUNOGLOBULIN HUMAN ANTIRABIES [Suspect]
     Route: 065
     Dates: start: 20061105
  4. RABIES VACCINE [Suspect]
     Indication: ACCIDENTAL EXPOSURE
     Route: 065
     Dates: start: 20061208
  5. RABIES VACCINE [Suspect]
     Route: 065
     Dates: start: 20061208
  6. RABIES VACCINE [Suspect]
     Route: 065
     Dates: start: 20061208
  7. TETANUS TOXOID [Suspect]
     Indication: ACCIDENTAL EXPOSURE
     Route: 065
     Dates: start: 20061105
  8. TETANUS TOXOID [Suspect]
     Route: 065
     Dates: start: 20061105
  9. TETANUS TOXOID [Suspect]
     Route: 065
     Dates: start: 20061105
  10. LOTENSIN [Concomitant]
  11. ZOCOR [Concomitant]
  12. TRICOR [Concomitant]
  13. LEVOTHYROXINE SODIUM [Concomitant]
  14. PRILOSEC [Concomitant]
  15. CLONOPIN [Concomitant]
  16. ANTIBIOTICS [Concomitant]

REACTIONS (3)
  - PNEUMONIA [None]
  - SINUSITIS [None]
  - STOMACH DISCOMFORT [None]
